FAERS Safety Report 24260921 (Version 1)
Quarter: 2024Q3

REPORT INFORMATION
  Report Type: Spontaneous
  Country: CA (occurrence: CA)
  Receive Date: 20240828
  Receipt Date: 20240828
  Transmission Date: 20241017
  Serious: Yes (Other)
  Sender: ORGANON
  Company Number: CA-ORGANON-O2408CAN001806

PATIENT
  Age: 52 Year
  Sex: Female

DRUGS (3)
  1. EZETIMIBE [Suspect]
     Active Substance: EZETIMIBE
     Indication: Lipids abnormal
     Dosage: 10 MILLIGRAM, EVERY 1 DAYS (QD)
     Route: 065
  2. ATORVASTATIN [Suspect]
     Active Substance: ATORVASTATIN
     Indication: Lipids abnormal
     Dosage: 80 MILLIGRAM, EVERY 1 DAYS(QD)
     Route: 065
  3. ROSUVASTATIN [Suspect]
     Active Substance: ROSUVASTATIN\ROSUVASTATIN CALCIUM
     Indication: Lipids abnormal
     Dosage: 40 MILLIGRAM,EVERY 1 DAYS (QD)
     Route: 065

REACTIONS (1)
  - Drug ineffective [Unknown]
